FAERS Safety Report 4941720-X (Version None)
Quarter: 2006Q1

REPORT INFORMATION
  Report Type: 
  Country: None (occurrence: None)
  Receive Date: 20060308
  Receipt Date: 20060223
  Transmission Date: 20060701
  Serious: Yes (Other)
  Sender: FDA-Public Use
  Company Number: 2006028482

PATIENT
  Age: 29 Year
  Sex: Male

DRUGS (2)
  1. CLINDAMYCIN HCL [Suspect]
     Indication: RHINITIS
     Dosage: INTRAVENOUS
     Route: 042
     Dates: start: 20060101, end: 20060201
  2. CORTISONE ACETATE [Concomitant]

REACTIONS (5)
  - GASTRITIS [None]
  - GASTROINTESTINAL DISORDER [None]
  - GASTROINTESTINAL PAIN [None]
  - HAEMORRHAGE [None]
  - OESOPHAGEAL ULCER [None]
